FAERS Safety Report 7296390-5 (Version None)
Quarter: 2011Q1

REPORT INFORMATION
  Report Type: 
  Country: None (occurrence: None)
  Receive Date: 20110211
  Receipt Date: 20110211
  Transmission Date: 20110831
  Serious: Yes (Life-Threatening)
  Sender: FDA-Public Use
  Company Number: None

PATIENT
  Age: 68 Year
  Sex: Male
  Weight: 90.7194 kg

DRUGS (1)
  1. AMBIEN [Suspect]
     Indication: SLEEP DISORDER
     Dosage: ONE TIME
     Dates: start: 20101228

REACTIONS (3)
  - MALAISE [None]
  - LOSS OF CONSCIOUSNESS [None]
  - DIZZINESS [None]
